FAERS Safety Report 9697493 (Version 1)
Quarter: 2013Q4

REPORT INFORMATION
  Report Type: Spontaneous
  Country: US (occurrence: None)
  Receive Date: 20131119
  Receipt Date: 20131119
  Transmission Date: 20140711
  Serious: No
  Sender: FDA-Public Use
  Company Number: None

PATIENT
  Age: 74 Year
  Sex: Female

DRUGS (2)
  1. FORTEO [Suspect]
  2. CALCIUM [Concomitant]

REACTIONS (9)
  - Road traffic accident [None]
  - Memory impairment [None]
  - Dyspnoea [None]
  - Hypotension [None]
  - Asthenia [None]
  - Dizziness [None]
  - Clavicle fracture [None]
  - Facial bones fracture [None]
  - Cerebral haemorrhage [None]
